FAERS Safety Report 5696538-X (Version None)
Quarter: 2008Q2

REPORT INFORMATION
  Report Type: 
  Country: None (occurrence: None)
  Receive Date: 20080404
  Receipt Date: 20080404
  Transmission Date: 20081010
  Serious: Yes (Life-Threatening, Hospitalization)
  Sender: FDA-Public Use
  Company Number: None

PATIENT
  Age: 19 Year
  Sex: Female
  Weight: 117.9352 kg

DRUGS (1)
  1. LAMICTAL [Suspect]
     Indication: BIPOLAR DISORDER
     Dosage: FOLLOWED INSTRUCTION IN BLUE  DAILY  PO
     Route: 048
     Dates: start: 20080314, end: 20080401

REACTIONS (13)
  - DISORIENTATION [None]
  - DYSPHAGIA [None]
  - DYSPNOEA [None]
  - ERYTHEMA [None]
  - LIP BLISTER [None]
  - LIP DISORDER [None]
  - MEASLES [None]
  - NASOPHARYNGITIS [None]
  - OROPHARYNGEAL BLISTERING [None]
  - PHARYNGEAL DISORDER [None]
  - PYREXIA [None]
  - RASH [None]
  - RESPIRATORY RATE INCREASED [None]
